FAERS Safety Report 7473423-4 (Version None)
Quarter: 2011Q1

REPORT INFORMATION
  Report Type: 
  Country: None (occurrence: None)
  Receive Date: 20110302
  Receipt Date: 20100909
  Transmission Date: 20110831
  Serious: Yes (Other)
  Sender: FDA-Public Use
  Company Number: 163-21880-10051139

PATIENT
  Age: 73 Year
  Sex: Male

DRUGS (2)
  1. REVLIMID [Suspect]
     Indication: MULTIPLE MYELOMA
     Dosage: 10 MG, 1 IN 1 D, PO; 15 MG, 1 IN 1 D, PO
     Route: 048
     Dates: start: 20080501, end: 20080701
  2. REVLIMID [Suspect]
     Indication: MULTIPLE MYELOMA
     Dosage: 10 MG, 1 IN 1 D, PO; 15 MG, 1 IN 1 D, PO
     Route: 048
     Dates: start: 20100301, end: 20100501

REACTIONS (8)
  - DYSPHONIA [None]
  - NASAL DRYNESS [None]
  - PRURITUS GENERALISED [None]
  - DYSPNOEA [None]
  - DERMATITIS BULLOUS [None]
  - DRY THROAT [None]
  - DRY SKIN [None]
  - ABDOMINAL DISCOMFORT [None]
